FAERS Safety Report 9437672 (Version 1)
Quarter: 2013Q3

REPORT INFORMATION
  Report Type: Report from Study
  Country: CA (occurrence: CA)
  Receive Date: 20130802
  Receipt Date: 20130802
  Transmission Date: 20140515
  Serious: Yes (Other)
  Sender: FDA-Public Use
  Company Number: CA-ASTRAZENECA-2013SE57142

PATIENT
  Age: 77 Year
  Sex: Male

DRUGS (10)
  1. ZOLADEX LA [Suspect]
     Indication: PROSTATE CANCER
     Route: 030
     Dates: start: 20100520, end: 20130725
  2. MYFORDIC [Concomitant]
  3. ASA [Concomitant]
  4. PREDNISONE [Concomitant]
  5. PANTOLOC [Concomitant]
  6. CYCLOSPORIN [Concomitant]
  7. VITAMIN D [Concomitant]
  8. RAMIPRIL [Concomitant]
  9. LIPITOR [Concomitant]
  10. TYLENOL [Concomitant]

REACTIONS (1)
  - Abdominal discomfort [Not Recovered/Not Resolved]
